FAERS Safety Report 17020643 (Version 1)
Quarter: 2019Q4

REPORT INFORMATION
  Report Type: Spontaneous
  Country: FR (occurrence: FR)
  Receive Date: 20191112
  Receipt Date: 20191112
  Transmission Date: 20200122
  Serious: Yes (Hospitalization, Other)
  Sender: FDA-Public Use
  Company Number: FR-PFIZER INC-2019481364

PATIENT
  Age: 32 Year
  Sex: Male

DRUGS (2)
  1. LYRICA [Suspect]
     Active Substance: PREGABALIN
     Dosage: 56 DF, 1X/DAY
     Route: 048
  2. RIVOTRIL [Suspect]
     Active Substance: CLONAZEPAM
     Dosage: 10 MG, 1X/DAY
     Route: 048

REACTIONS (5)
  - Amnestic disorder [Not Recovered/Not Resolved]
  - Aggression [Unknown]
  - Overdose [Recovering/Resolving]
  - Confusional state [Unknown]
  - Drug detoxification [Recovering/Resolving]
